FAERS Safety Report 9366764 (Version 1)
Quarter: 2013Q2

REPORT INFORMATION
  Report Type: Spontaneous
  Country: CA (occurrence: CA)
  Receive Date: 20130625
  Receipt Date: 20130625
  Transmission Date: 20140414
  Serious: Yes (Other)
  Sender: FDA-Public Use
  Company Number: CA-009507513-1306CAN010421

PATIENT
  Age: 6 Week
  Sex: Female

DRUGS (3)
  1. TEMODAL [Suspect]
     Indication: ASTROCYTOMA
  2. VINCRISTINE SULFATE [Suspect]
  3. CARBOPLATIN [Suspect]

REACTIONS (1)
  - Recurrent cancer [Recovered/Resolved with Sequelae]
